FAERS Safety Report 12474935 (Version 1)
Quarter: 2016Q2

REPORT INFORMATION
  Report Type: Spontaneous
  Country: US (occurrence: None)
  Receive Date: 20160616
  Receipt Date: 20160616
  Transmission Date: 20160815
  Serious: No
  Sender: FDA-Public Use
  Company Number: None

PATIENT
  Age: 65 Year
  Sex: Female

DRUGS (1)
  1. HARVONI [Suspect]
     Active Substance: LEDIPASVIR\SOFOSBUVIR
     Indication: HEPATITIS C
     Route: 048
     Dates: start: 20160408

REACTIONS (5)
  - Muscle spasms [None]
  - Chromaturia [None]
  - Pruritus [None]
  - Decreased appetite [None]
  - Abdominal pain upper [None]

NARRATIVE: CASE EVENT DATE: 201606
